FAERS Safety Report 7637278-7 (Version None)
Quarter: 2011Q3

REPORT INFORMATION
  Report Type: 
  Country: None (occurrence: None)
  Receive Date: 20110726
  Receipt Date: 20110721
  Transmission Date: 20111222
  Serious: Yes (Other)
  Sender: FDA-Public Use
  Company Number: US-PFIZER INC-2010126288

PATIENT
  Sex: Female
  Weight: 83.9 kg

DRUGS (4)
  1. METHADONE [Concomitant]
     Indication: CROHN'S DISEASE
     Dosage: 20 MG, AS NEEDED
     Route: 048
  2. LYRICA [Suspect]
     Dosage: 50 MG, 3X/DAY
     Route: 048
  3. LISINOPRIL [Concomitant]
     Indication: HYPERTENSION
     Dosage: UNK
  4. LYRICA [Suspect]
     Indication: DIABETIC NEUROPATHY
     Dosage: 75 MG, 3X/DAY
     Route: 048
     Dates: start: 20100301, end: 20101003

REACTIONS (18)
  - OEDEMA PERIPHERAL [None]
  - BLISTER [None]
  - FATIGUE [None]
  - ERYTHEMA [None]
  - MENTAL IMPAIRMENT [None]
  - DYSPNOEA [None]
  - MALAISE [None]
  - BURNING SENSATION [None]
  - FEELING ABNORMAL [None]
  - CROHN'S DISEASE [None]
  - SKIN DISCOLOURATION [None]
  - DISTURBANCE IN ATTENTION [None]
  - TREMOR [None]
  - DRUG INEFFECTIVE [None]
  - PAIN [None]
  - SOMNOLENCE [None]
  - SKIN EXFOLIATION [None]
  - DIARRHOEA [None]
